FAERS Safety Report 6990180-6 (Version None)
Quarter: 2010Q3

REPORT INFORMATION
  Report Type: 
  Country: None (occurrence: None)
  Receive Date: 20100916
  Receipt Date: 20100506
  Transmission Date: 20110219
  Serious: Yes (Hospitalization, Other)
  Sender: FDA-Public Use
  Company Number: US-PFIZER INC-2010040101

PATIENT
  Sex: Male
  Weight: 77.098 kg

DRUGS (9)
  1. LYRICA [Suspect]
     Indication: NEUROPATHY PERIPHERAL
     Dosage: 100 MG, 1X/DAY AT BEDTIME
     Route: 048
     Dates: start: 20080916
  2. ISENTRESS [Concomitant]
     Indication: HIV TEST POSITIVE
     Dosage: UNK
  3. TRUVADA [Concomitant]
     Indication: HIV TEST POSITIVE
     Dosage: UNK
  4. RITALIN [Concomitant]
     Indication: ATTENTION DEFICIT/HYPERACTIVITY DISORDER
     Dosage: UNK
  5. ZOCOR [Concomitant]
     Dosage: UNK
  6. KALETRA [Concomitant]
  7. VALTREX [Concomitant]
  8. SIMVASTATIN [Concomitant]
     Dosage: UNK
  9. KETOCONAZOLE [Concomitant]

REACTIONS (5)
  - BLOOD CHOLESTEROL INCREASED [None]
  - CORONARY ARTERY DISEASE [None]
  - DIZZINESS [None]
  - TINEA PEDIS [None]
  - TRANSIENT ISCHAEMIC ATTACK [None]
